FAERS Safety Report 8392936-4 (Version None)
Quarter: 2012Q1

REPORT INFORMATION
  Report Type: 
  Country: None (occurrence: None)
  Receive Date: 20120323
  Receipt Date: 20110421
  Transmission Date: 20120608
  Serious: Yes (Death)
  Sender: FDA-Public Use
  Company Number: 163-21880-11030320

PATIENT
  Age: 69 Year
  Sex: Female

DRUGS (16)
  1. CALCIUM CARBONATE [Concomitant]
  2. DEXAMETHASONE [Concomitant]
  3. MULTIVITAMIN [Concomitant]
  4. TRAZODONE HCL [Concomitant]
  5. FUROSEMIDE [Concomitant]
  6. LEVETIRACETAM [Concomitant]
  7. METAXALONE [Concomitant]
  8. CALCIUM CARBONATE [Concomitant]
  9. ASPIRIN [Concomitant]
  10. CLONAZEPAM [Concomitant]
  11. KLOR-CON [Concomitant]
  12. ZIPRASIDONE HYDROCHLORIDE (GEODON) [Concomitant]
  13. REVLIMID [Suspect]
     Indication: MULTIPLE MYELOMA
     Dosage: 10 MG, QD X 28 DAYS, PO
     Route: 048
     Dates: start: 20090901
  14. MEGESTROL ACETATE [Concomitant]
  15. OXYCODONE HCL [Concomitant]
  16. LISINOPRIL [Concomitant]

REACTIONS (1)
  - CARDIAC FAILURE CONGESTIVE [None]
